FAERS Safety Report 11740635 (Version 2)
Quarter: 2015Q4

REPORT INFORMATION
  Report Type: Spontaneous
  Country: US (occurrence: US)
  Receive Date: 20151110
  Receipt Date: 20151120
  Transmission Date: 20160304
  Serious: No
  Sender: FDA-Public Use
  Company Number: US-ELI_LILLY_AND_COMPANY-US201204008326

PATIENT
  Age: 57 Year
  Sex: Female

DRUGS (3)
  1. FORTEO [Suspect]
     Active Substance: TERIPARATIDE
     Indication: OSTEOPOROSIS
     Dosage: UNK, QD
     Route: 065
     Dates: start: 2012
  2. FORTEO [Suspect]
     Active Substance: TERIPARATIDE
     Dosage: UNK, QD
     Route: 065
     Dates: end: 201303
  3. FORTEO [Suspect]
     Active Substance: TERIPARATIDE
     Dosage: UNK, QD
     Route: 065

REACTIONS (12)
  - Musculoskeletal pain [Unknown]
  - Arthritis [Unknown]
  - Arthralgia [Unknown]
  - Depression [Unknown]
  - Pain [Unknown]
  - Myalgia [Not Recovered/Not Resolved]
  - Pain in extremity [Unknown]
  - Dyspepsia [Unknown]
  - Blood calcium increased [Recovered/Resolved]
  - Crepitations [Unknown]
  - Asthenia [Recovering/Resolving]
  - Constipation [Recovering/Resolving]

NARRATIVE: CASE EVENT DATE: 201302
